FAERS Safety Report 7197412-2 (Version None)
Quarter: 2010Q4

REPORT INFORMATION
  Report Type: 
  Country: None (occurrence: None)
  Receive Date: 20101227
  Receipt Date: 20101214
  Transmission Date: 20110411
  Serious: Yes (Other)
  Sender: FDA-Public Use
  Company Number: US-JNJFOC-20100807775

PATIENT
  Sex: Male

DRUGS (3)
  1. LEVAQUIN [Suspect]
     Indication: BRONCHITIS
     Route: 048
  2. LEVAQUIN [Suspect]
     Indication: PNEUMONIA
     Route: 048
  3. LEVAQUIN [Suspect]
     Route: 042

REACTIONS (8)
  - ANXIETY [None]
  - CARPAL TUNNEL SYNDROME [None]
  - MENISCUS LESION [None]
  - MYALGIA [None]
  - ROTATOR CUFF SYNDROME [None]
  - SYNOVITIS [None]
  - TENDON RUPTURE [None]
  - TENOSYNOVITIS [None]
